FAERS Safety Report 15385201 (Version 5)
Quarter: 2018Q4

REPORT INFORMATION
  Report Type: Spontaneous
  Country: JP (occurrence: JP)
  Receive Date: 20180914
  Receipt Date: 20181205
  Transmission Date: 20190204
  Serious: Yes (Life-Threatening, Hospitalization, Other)
  Sender: FDA-Public Use
  Company Number: PHJP2018JP016010

PATIENT
  Age: 61 Year
  Sex: Male
  Weight: 75 kg

DRUGS (2)
  1. VOTRIENT [Suspect]
     Active Substance: PAZOPANIB HYDROCHLORIDE
     Indication: RENAL CELL CARCINOMA
     Dosage: 600 MG, QD
     Route: 048
     Dates: start: 20180807, end: 20180830
  2. PREDONINE [Concomitant]
     Active Substance: PREDNISOLONE
     Indication: PRODUCT USED FOR UNKNOWN INDICATION
     Dosage: UNK
     Route: 065
     Dates: end: 20180928

REACTIONS (16)
  - Jaundice [Unknown]
  - Malaise [Unknown]
  - Nausea [Unknown]
  - Oedema peripheral [Unknown]
  - Duodenal ulcer [Recovered/Resolved]
  - Disseminated intravascular coagulation [Unknown]
  - Chromaturia [Unknown]
  - Cough [Unknown]
  - Decreased appetite [Unknown]
  - Hepatitis fulminant [Recovered/Resolved]
  - Hepatorenal failure [Recovered/Resolved]
  - Concomitant disease aggravated [Recovered/Resolved]
  - Pyrexia [Unknown]
  - Liver disorder [Recovered/Resolved]
  - Headache [Unknown]
  - Ascites [Unknown]

NARRATIVE: CASE EVENT DATE: 201808
